FAERS Safety Report 4398223-3 (Version None)
Quarter: 2004Q3

REPORT INFORMATION
  Report Type: 
  Country: None (occurrence: None)
  Receive Date: 20040714
  Receipt Date: 20040714
  Transmission Date: 20050211
  Serious: Yes (Other)
  Sender: FDA-Public Use
  Company Number: None

PATIENT
  Age: 45 Year
  Sex: Female
  Weight: 53.5244 kg

DRUGS (1)
  1. PAROXETINE HCL [Suspect]
     Indication: ANXIETY
     Dosage: SEE B5
     Dates: start: 20031001, end: 20040401

REACTIONS (11)
  - ABNORMAL DREAMS [None]
  - ARTHRALGIA [None]
  - CRYING [None]
  - DIARRHOEA [None]
  - DRUG EFFECT DECREASED [None]
  - DYSARTHRIA [None]
  - HOT FLUSH [None]
  - HYPOAESTHESIA [None]
  - MEMORY IMPAIRMENT [None]
  - NIGHT SWEATS [None]
  - PAIN IN EXTREMITY [None]
